FAERS Safety Report 4410021-0 (Version None)
Quarter: 2004Q3

REPORT INFORMATION
  Report Type: 
  Country: None (occurrence: None)
  Receive Date: 20040726
  Receipt Date: 20040715
  Transmission Date: 20050211
  Serious: Yes (Death, Life-Threatening)
  Sender: FDA-Public Use
  Company Number: 04H-062-0267266-00

PATIENT
  Age: 72 Year
  Sex: Male

DRUGS (1)
  1. HEPARIN SODIUM [Suspect]
     Indication: KNEE ARTHROPLASTY

REACTIONS (6)
  - BRAIN HERNIATION [None]
  - DEEP VEIN THROMBOSIS [None]
  - HAEMORRHAGIC CEREBRAL INFARCTION [None]
  - HEPARIN-INDUCED THROMBOCYTOPENIA [None]
  - MYOCARDIAL INFARCTION [None]
  - SUPERIOR SAGITTAL SINUS THROMBOSIS [None]
